FAERS Safety Report 8169749-1 (Version None)
Quarter: 2012Q1

REPORT INFORMATION
  Report Type: 
  Country: None (occurrence: None)
  Receive Date: 20120222
  Receipt Date: 20120217
  Transmission Date: 20120608
  Serious: Yes (Other)
  Sender: FDA-Public Use
  Company Number: GER/UKI/12/0023067

PATIENT
  Age: 17 Year
  Sex: Female
  Weight: 53.6 kg

DRUGS (3)
  1. MELATONIN (MELATONIN) [Concomitant]
  2. SERTRALINE HYDROCHLORIDE [Suspect]
     Indication: ASPERGER'S DISORDER
     Dosage: 50 MG, 1 IN 1 D, ORAL
     Route: 048
     Dates: start: 20111111, end: 20111129
  3. LORATADINE [Concomitant]

REACTIONS (9)
  - VERTIGO [None]
  - DIZZINESS [None]
  - NEUROLOGICAL EXAMINATION ABNORMAL [None]
  - SYNCOPE [None]
  - PARAESTHESIA ORAL [None]
  - TINNITUS [None]
  - GAIT DISTURBANCE [None]
  - HYPOAESTHESIA [None]
  - FEELING DRUNK [None]
